FAERS Safety Report 18740004 (Version 1)
Quarter: 2021Q1

REPORT INFORMATION
  Report Type: Spontaneous
  Country: IT (occurrence: IT)
  Receive Date: 20210114
  Receipt Date: 20210114
  Transmission Date: 20210419
  Serious: Yes (Life-Threatening, Hospitalization)
  Sender: FDA-Public Use
  Company Number: IT-MYLANLABS-2021M1001575

PATIENT
  Age: 57 Year
  Sex: Female

DRUGS (1)
  1. OLANZAPINE. [Suspect]
     Active Substance: OLANZAPINE
     Indication: SCHIZOPHRENIA
     Dosage: 10 MILLIGRAM, QD
     Route: 065

REACTIONS (9)
  - Pulmonary embolism [Recovering/Resolving]
  - Mesenteric vein thrombosis [Recovering/Resolving]
  - Systemic infection [Unknown]
  - Weight increased [Unknown]
  - Portal vein thrombosis [Recovering/Resolving]
  - Colitis ischaemic [Unknown]
  - Acute kidney injury [Unknown]
  - Lethargy [Unknown]
  - Intestinal ischaemia [Unknown]
